FAERS Safety Report 10638580 (Version 2)
Quarter: 2014Q4

REPORT INFORMATION
  Report Type: Spontaneous
  Country: CA (occurrence: CA)
  Receive Date: 20141208
  Receipt Date: 20141208
  Transmission Date: 20150529
  Serious: Yes (Hospitalization, Other)
  Sender: FDA-Public Use
  Company Number: CA-NAPPMUNDI-CAN-2014-0005356

PATIENT
  Age: 65 Year
  Sex: Male

DRUGS (14)
  1. HYDROMORPHONE HCL [Suspect]
     Active Substance: HYDROMORPHONE HYDROCHLORIDE
     Indication: FLANK PAIN
     Dosage: 3 MG, UNK
     Route: 048
     Dates: start: 201404
  2. HYDROMORPHONE HCL [Suspect]
     Active Substance: HYDROMORPHONE HYDROCHLORIDE
     Dosage: 18 MG, UNK
     Route: 048
     Dates: start: 201404
  3. MPDL3280A [Suspect]
     Active Substance: INVESTIGATIONAL PRODUCT
     Indication: BLADDER TRANSITIONAL CELL CARCINOMA
     Dosage: 1200 MG, Q 3 WEEKS
     Route: 042
     Dates: start: 20141024
  4. SENNA LAXATIVE [Concomitant]
     Active Substance: SENNOSIDES A AND B
     Indication: CONSTIPATION PROPHYLAXIS
     Dosage: 8.8 MG, UNK
     Route: 048
     Dates: start: 2014
  5. HYDROMORPH CONTIN [Suspect]
     Active Substance: HYDROMORPHONE
     Indication: FLANK PAIN
     Dosage: 9 MG, BID
     Route: 048
     Dates: start: 20141008, end: 20141025
  6. HYDROMORPHONE HCL [Suspect]
     Active Substance: HYDROMORPHONE HYDROCHLORIDE
     Dosage: 1 MG, Q1H PRN
     Route: 065
     Dates: start: 20140924, end: 20141028
  7. SENNA LAXATIVE [Concomitant]
     Active Substance: SENNOSIDES A AND B
     Dosage: 1-2 TABLET, DAILY
     Route: 065
     Dates: start: 20141008
  8. SOFLAX                             /00061602/ [Concomitant]
     Indication: CONSTIPATION PROPHYLAXIS
     Dosage: 100 MG, UNK
     Route: 048
  9. LORAZEPAM. [Concomitant]
     Active Substance: LORAZEPAM
     Indication: PRODUCT USED FOR UNKNOWN INDICATION
     Dosage: 1 MG, UNK
     Route: 060
     Dates: start: 20141030
  10. LACTULOSE. [Concomitant]
     Active Substance: LACTULOSE
     Indication: CONSTIPATION
     Dosage: 30 ML, PRN
     Route: 048
     Dates: start: 20141013
  11. TAXOTERE [Concomitant]
     Active Substance: DOCETAXEL
     Indication: BLADDER CANCER
     Dosage: 120 MG, UNK
     Route: 042
     Dates: start: 20141110
  12. POLYETHYLENE GLYCOL [Concomitant]
     Active Substance: POLYETHYLENE GLYCOLS
     Indication: CONSTIPATION PROPHYLAXIS
     Dosage: 1 DF, UNK
     Route: 048
     Dates: start: 2014
  13. HYDROMORPH CONTIN [Suspect]
     Active Substance: HYDROMORPHONE
     Dosage: 12 MG, BID
     Route: 048
     Dates: start: 20141026
  14. PANTOPRAZOLE [Concomitant]
     Active Substance: PANTOPRAZOLE SODIUM
     Indication: GASTROOESOPHAGEAL REFLUX DISEASE
     Dosage: 20 MG, UNK
     Route: 048
     Dates: start: 2014

REACTIONS (8)
  - Delirium [Unknown]
  - Hallucination [Unknown]
  - Speech disorder [Unknown]
  - Toxicity to various agents [Not Recovered/Not Resolved]
  - Dyskinesia [Unknown]
  - Clonus [Unknown]
  - Insomnia [Unknown]
  - Disturbance in attention [Unknown]

NARRATIVE: CASE EVENT DATE: 20141026
